FAERS Safety Report 5557707-2 (Version None)
Quarter: 2007Q4

REPORT INFORMATION
  Report Type: 
  Country: None (occurrence: None)
  Receive Date: 20071214
  Receipt Date: 20071130
  Transmission Date: 20080405
  Serious: Yes (Death)
  Sender: FDA-Public Use
  Company Number: JP-GENENTECH-252461

PATIENT
  Sex: Male

DRUGS (12)
  1. BEVACIZUMAB [Suspect]
     Indication: RECTAL CANCER
     Dosage: 10 MG/KG, Q2W
     Route: 042
     Dates: start: 20071009, end: 20071106
  2. FLUOROURACIL [Concomitant]
     Indication: RECTAL CANCER
     Dates: start: 20071009, end: 20071108
  3. ISOVORIN [Concomitant]
     Indication: RECTAL CANCER
     Dates: start: 20071009, end: 20071107
  4. OXALIPLATIN [Concomitant]
     Indication: RECTAL CANCER
     Dates: start: 20071009, end: 20071106
  5. CYTOTEC [Concomitant]
     Indication: DRUG USE FOR UNKNOWN INDICATION
     Dates: end: 20071106
  6. DICLOFENAC [Concomitant]
     Indication: DRUG USE FOR UNKNOWN INDICATION
     Dates: start: 20071010, end: 20071106
  7. LOXONIN [Concomitant]
     Indication: DRUG USE FOR UNKNOWN INDICATION
     Dates: start: 20070815, end: 20071009
  8. MORPHINE HCL ELIXIR [Concomitant]
     Indication: DRUG USE FOR UNKNOWN INDICATION
     Dates: end: 20071106
  9. NORVASC [Concomitant]
     Indication: DRUG USE FOR UNKNOWN INDICATION
     Dates: end: 20071106
  10. OXYCONTIN [Concomitant]
     Indication: DRUG USE FOR UNKNOWN INDICATION
     Dates: end: 20071106
  11. ENALAPRIL MALEATE [Concomitant]
     Indication: DRUG USE FOR UNKNOWN INDICATION
     Dates: end: 20071106
  12. RIVOTRIL [Concomitant]
     Indication: DRUG USE FOR UNKNOWN INDICATION
     Dates: end: 20071106

REACTIONS (3)
  - CONDITION AGGRAVATED [None]
  - INFECTION [None]
  - SEPSIS [None]
